FAERS Safety Report 9166156 (Version 1)
Quarter: 2013Q1

REPORT INFORMATION
  Report Type: Report from Study
  Country: US (occurrence: US)
  Receive Date: 20130315
  Receipt Date: 20130315
  Transmission Date: 20140127
  Serious: Yes (Other)
  Sender: FDA-Public Use
  Company Number: US-ABBOTT-13P-163-1059926-00

PATIENT
  Sex: Female
  Weight: 56.75 kg

DRUGS (4)
  1. HUMIRA [Suspect]
     Indication: RHEUMATOID ARTHRITIS
     Route: 058
     Dates: start: 2007, end: 201208
  2. MULTIVITAMIN [Concomitant]
     Indication: PRODUCT USED FOR UNKNOWN INDICATION
  3. UNKNOWN INHALERS [Concomitant]
     Indication: ASTHMA
  4. NEURONTIN [Concomitant]
     Indication: FIBROMYALGIA

REACTIONS (11)
  - Judgement impaired [Recovered/Resolved]
  - Fall [Recovered/Resolved]
  - Meniscus injury [Recovered/Resolved]
  - Retinal tear [Recovered/Resolved]
  - Cataract [Recovered/Resolved]
  - Stress [Recovered/Resolved]
  - Monoplegia [Recovered/Resolved]
  - Limb immobilisation [Recovered/Resolved]
  - Abasia [Recovered/Resolved]
  - Rheumatoid arthritis [Recovered/Resolved]
  - Drug ineffective [Unknown]
